FAERS Safety Report 6925610-9 (Version None)
Quarter: 2010Q3

REPORT INFORMATION
  Report Type: 
  Country: None (occurrence: None)
  Receive Date: 20100816
  Receipt Date: 20100806
  Transmission Date: 20110219
  Serious: Yes (Hospitalization)
  Sender: FDA-Public Use
  Company Number: AR-AMGEN-QUU430702

PATIENT
  Sex: Female

DRUGS (6)
  1. ENBREL [Suspect]
     Indication: RHEUMATOID ARTHRITIS
     Route: 058
     Dates: start: 20070101, end: 20100501
  2. ENBREL [Suspect]
     Route: 058
     Dates: start: 20100701
  3. CALCIUM [Concomitant]
     Dosage: UNSPECIFIED ONCE DAILY
     Route: 048
  4. PREGABALIN [Concomitant]
     Route: 048
  5. ENALAPRIL [Concomitant]
     Indication: HYPERTENSION
     Route: 048
  6. DICLOFENAC SODIUM [Concomitant]
     Indication: INFLAMMATION
     Route: 048

REACTIONS (1)
  - LOSS OF CONSCIOUSNESS [None]
